FAERS Safety Report 8321472-6 (Version None)
Quarter: 2012Q2

REPORT INFORMATION
  Report Type: 
  Country: None (occurrence: None)
  Receive Date: 20120430
  Receipt Date: 20120430
  Transmission Date: 20120825
  Serious: Yes (Life-Threatening, Hospitalization)
  Sender: FDA-Public Use
  Company Number: None

PATIENT
  Age: 39 Year
  Sex: Female
  Weight: 72 kg

DRUGS (2)
  1. CEFAZOLIN [Suspect]
     Indication: ANTIBIOTIC PROPHYLAXIS
     Dosage: 100.0 MG
     Route: 042
  2. CEFAZOLIN [Concomitant]

REACTIONS (3)
  - INFUSION RELATED REACTION [None]
  - ANAPHYLACTIC REACTION [None]
  - INFUSION SITE PAIN [None]
